FAERS Safety Report 16243671 (Version 6)
Quarter: 2020Q1

REPORT INFORMATION
  Report Type: Spontaneous
  Country: US (occurrence: US)
  Receive Date: 20190426
  Receipt Date: 20200316
  Transmission Date: 20200409
  Serious: Yes (Other)
  Sender: FDA-Public Use
  Company Number: US-PFIZER INC-2019086826

PATIENT
  Age: 57 Year
  Sex: Female
  Weight: 97 kg

DRUGS (6)
  1. LYRICA [Suspect]
     Active Substance: PREGABALIN
     Dosage: 450 MG, UNK
  2. LYRICA [Suspect]
     Active Substance: PREGABALIN
     Dosage: 250 MG, DAILY, (TAKE 100 MG IN THE MORNING AND 150 MG IN THE EVENING)
  3. LYRICA [Suspect]
     Active Substance: PREGABALIN
     Dosage: 250 MG, DAILY (2 CAPSULES IN THE MORNING, ONE IN THE AFTERNOON, AND TWO CAPSULES IN THE EVENING )
     Route: 048
     Dates: start: 201806
  4. TRAMADOL. [Concomitant]
     Active Substance: TRAMADOL
     Dosage: 100 MG, UNK
  5. LYRICA [Suspect]
     Active Substance: PREGABALIN
     Indication: FIBROMYALGIA
     Dosage: UNK
     Dates: start: 201807
  6. LYRICA [Suspect]
     Active Substance: PREGABALIN
     Indication: PAIN IN EXTREMITY
     Dosage: 50 MG, 2X/DAY
     Route: 048
     Dates: start: 201803

REACTIONS (6)
  - Feeling abnormal [Unknown]
  - Body height decreased [Unknown]
  - Therapeutic product effect incomplete [Unknown]
  - Brain injury [Unknown]
  - Limb discomfort [Unknown]
  - Product dose omission [Unknown]

NARRATIVE: CASE EVENT DATE: 201803
